FAERS Safety Report 9229112 (Version 1)
Quarter: 2013Q2

REPORT INFORMATION
  Report Type: Spontaneous
  Country: US (occurrence: US)
  Receive Date: 20130412
  Receipt Date: 20130412
  Transmission Date: 20140414
  Serious: Yes (Other)
  Sender: FDA-Public Use
  Company Number: US-ASTRAZENECA-2013SE22256

PATIENT
  Sex: Female

DRUGS (3)
  1. NEXIUM [Suspect]
     Indication: DYSPEPSIA
     Route: 048
     Dates: start: 2002
  2. NEXIUM [Suspect]
     Indication: DYSPEPSIA
     Dosage: EVERY THIRD DAY SOMETIMES
     Route: 048
  3. UNSPECIFIED MEDICATIONS [Concomitant]

REACTIONS (6)
  - Rib fracture [Not Recovered/Not Resolved]
  - Mental disorder [Unknown]
  - Loss of consciousness [Unknown]
  - Dry mouth [Not Recovered/Not Resolved]
  - Malaise [Not Recovered/Not Resolved]
  - Off label use [Not Recovered/Not Resolved]
